FAERS Safety Report 9175481 (Version 1)
Quarter: 2013Q1

REPORT INFORMATION
  Report Type: Spontaneous
  Country: US (occurrence: US)
  Receive Date: 20130320
  Receipt Date: 20130320
  Transmission Date: 20140127
  Serious: No
  Sender: FDA-Public Use
  Company Number: US-BAYER-2013-031400

PATIENT
  Age: 61 Year
  Sex: Male

DRUGS (1)
  1. ULTRAVIST [Suspect]
     Indication: ANGIOGRAM PERIPHERAL
     Dosage: 120 ML, ONCE
     Route: 042
     Dates: start: 20130312, end: 20130312

REACTIONS (1)
  - Injection site extravasation [None]
